FAERS Safety Report 20164917 (Version 1)
Quarter: 2021Q4

REPORT INFORMATION
  Report Type: Spontaneous
  Country: AU (occurrence: AU)
  Receive Date: 20211209
  Receipt Date: 20211209
  Transmission Date: 20220304
  Serious: Yes (Death, Other)
  Sender: FDA-Public Use
  Company Number: AU-BoehringerIngelheim-2021-BI-142427

PATIENT
  Age: 9 Decade
  Sex: Male

DRUGS (1)
  1. JARDIANCE [Suspect]
     Active Substance: EMPAGLIFLOZIN
     Indication: Product used for unknown indication

REACTIONS (2)
  - Death [Fatal]
  - Fournier^s gangrene [Unknown]

NARRATIVE: CASE EVENT DATE: 20200101
